FAERS Safety Report 20540469 (Version 1)
Quarter: 2022Q1

REPORT INFORMATION
  Report Type: Report from Study
  Country: BR (occurrence: BR)
  Receive Date: 20220302
  Receipt Date: 20220302
  Transmission Date: 20220423
  Serious: Yes (Other)
  Sender: FDA-Public Use
  Company Number: BR-JNJFOC-20211129091

PATIENT
  Age: 33 Year
  Sex: Male
  Weight: 102 kg

DRUGS (2)
  1. REMICADE [Suspect]
     Active Substance: INFLIXIMAB
     Indication: Crohn^s disease
     Dosage: 5 AMPOULES
     Route: 042
     Dates: start: 20200101
  2. REMICADE [Suspect]
     Active Substance: INFLIXIMAB
     Dosage: 11 AMPOULES
     Route: 042
     Dates: start: 20200101

REACTIONS (4)
  - Crohn^s disease [Recovering/Resolving]
  - Abnormal weight gain [Unknown]
  - Off label use [Unknown]
  - Incorrect dose administered [Unknown]
